FAERS Safety Report 12633700 (Version 2)
Quarter: 2016Q3

REPORT INFORMATION
  Report Type: Spontaneous
  Country: RU (occurrence: RU)
  Receive Date: 20160809
  Receipt Date: 20160809
  Transmission Date: 20161109
  Serious: Yes (Hospitalization, Other)
  Sender: FDA-Public Use
  Company Number: RU-BAYER-2016-148398

PATIENT
  Sex: Female

DRUGS (3)
  1. MIRENA [Suspect]
     Active Substance: LEVONORGESTREL
     Dosage: 20 MCG/24HR, CONT
     Route: 015
     Dates: start: 20101028, end: 20120207
  2. MIRENA [Suspect]
     Active Substance: LEVONORGESTREL
     Dosage: 20 MCG/24HR, CONT
     Route: 015
     Dates: start: 20131124
  3. IMPLANON [Concomitant]
     Active Substance: ETONOGESTREL
     Indication: CONTRACEPTION
     Dosage: UNK

REACTIONS (17)
  - Back pain [None]
  - Pain [None]
  - Blood androstenedione increased [None]
  - Endometrial atrophy [None]
  - Peritoneal haemorrhage [None]
  - Acne [None]
  - Ectopic pregnancy with contraceptive device [None]
  - Maternal exposure before pregnancy [None]
  - Menstruation delayed [None]
  - Device dislocation [None]
  - Spinal osteoarthritis [None]
  - Cervicitis [None]
  - Abdominal pain lower [None]
  - Amenorrhoea [None]
  - Ectropion of cervix [None]
  - Hypomenorrhoea [None]
  - Gastrointestinal pain [None]

NARRATIVE: CASE EVENT DATE: 20120207
